FAERS Safety Report 10077279 (Version 2)
Quarter: 2014Q2

REPORT INFORMATION
  Report Type: Spontaneous
  Country: US (occurrence: US)
  Receive Date: 20140414
  Receipt Date: 20140414
  Transmission Date: 20141212
  Serious: No
  Sender: FDA-Public Use
  Company Number: US-BANPHARM-20131239

PATIENT
  Age: 80 Year
  Sex: Female
  Weight: 65.77 kg

DRUGS (3)
  1. ALEVE LIQUID GELS 220 MG [Suspect]
     Indication: BACK PAIN
     Dosage: 2 DF, PRN,
     Route: 048
  2. VITAMIN D 200 IU [Concomitant]
  3. CITRACAL CAL+D SLOW RELEASE [Concomitant]

REACTIONS (1)
  - Glossodynia [Unknown]
